FAERS Safety Report 9299445 (Version 2)
Quarter: 2013Q2

REPORT INFORMATION
  Report Type: Spontaneous
  Country: JP (occurrence: JP)
  Receive Date: 20130521
  Receipt Date: 20130524
  Transmission Date: 20140414
  Serious: Yes (Hospitalization)
  Sender: FDA-Public Use
  Company Number: JP-ROCHE-1226514

PATIENT
  Age: 32 Year
  Sex: Male

DRUGS (3)
  1. XELODA [Suspect]
     Indication: HEPATOCELLULAR CARCINOMA
     Dosage: DOSAGE IS UNCERTAIN.
     Route: 048
  2. XELODA [Suspect]
     Indication: OFF LABEL USE
  3. INTERFERON ALFA-2A [Concomitant]
     Dosage: DOSAGE IS UNCERTAIN.
     Route: 065

REACTIONS (1)
  - Metastases to central nervous system [Unknown]
